FAERS Safety Report 21096070 (Version 1)
Quarter: 2022Q3

REPORT INFORMATION
  Report Type: Spontaneous
  Country: CN (occurrence: CN)
  Receive Date: 20220718
  Receipt Date: 20220718
  Transmission Date: 20221026
  Serious: Yes (Hospitalization)
  Sender: FDA-Public Use
  Company Number: CN-KOWA PHARMACEUTICALS-2022KOW00005

PATIENT
  Age: 32 Year
  Sex: Male

DRUGS (8)
  1. CELECOXIB [Suspect]
     Active Substance: CELECOXIB
     Indication: Infection
     Dosage: 200 MG, 2X/DAY
     Route: 048
  2. CELECOXIB [Suspect]
     Active Substance: CELECOXIB
     Dosage: 200 MG, 1X/DAY
     Route: 048
  3. TRAMADOL [Concomitant]
     Active Substance: TRAMADOL
     Indication: Infection
     Dosage: 100 MG, 2X/DAY
     Route: 048
  4. CEFAMANDOLE NAFATE [Concomitant]
     Active Substance: CEFAMANDOLE NAFATE
     Indication: Injection
     Dosage: 2 G I.V.GTT EVERY 12 HOURS
     Route: 042
  5. CALCITRIOL [Concomitant]
     Active Substance: CALCITRIOL
     Indication: Infection
     Dosage: 0.5 ?G, 2X/DAY
     Route: 048
  6. MOXIFLOXACIN [Concomitant]
     Active Substance: MOXIFLOXACIN
     Indication: Infection
     Route: 065
  7. MOXIFLOXACIN [Concomitant]
     Active Substance: MOXIFLOXACIN
     Dosage: 400 MG, 1X/DAY
     Route: 048
  8. SODIUM ESCINATE [Concomitant]
     Active Substance: SODIUM ESCINATE
     Indication: Swelling
     Dosage: 60 MG, 2X/DAY
     Route: 048

REACTIONS (1)
  - Pyrexia [Recovered/Resolved]
